FAERS Safety Report 14688541 (Version 2)
Quarter: 2018Q2

REPORT INFORMATION
  Report Type: Spontaneous
  Country: FI (occurrence: FI)
  Receive Date: 20180328
  Receipt Date: 20180403
  Transmission Date: 20180711
  Serious: Yes (Hospitalization, Other)
  Sender: FDA-Public Use
  Company Number: FI-BAYER-2018-054135

PATIENT
  Sex: Male

DRUGS (5)
  1. STIVARGA [Suspect]
     Active Substance: REGORAFENIB
     Indication: COLORECTAL CANCER METASTATIC
     Dosage: 120 MG DAILY
     Dates: start: 20171019, end: 20171026
  2. STIVARGA [Suspect]
     Active Substance: REGORAFENIB
     Indication: COLORECTAL CANCER METASTATIC
     Dosage: 80 MG DAILY
     Dates: start: 20170824
  3. STIVARGA [Suspect]
     Active Substance: REGORAFENIB
     Indication: COLORECTAL CANCER METASTATIC
     Dosage: 120 MG DAILY
     Dates: start: 20170921, end: 2017
  4. EMGESAN [Concomitant]
     Dosage: UNK
     Dates: start: 20171026
  5. SOMAC [Concomitant]
     Active Substance: PANTOPRAZOLE SODIUM
     Dosage: UNK
     Dates: start: 20171026

REACTIONS (8)
  - Melaena [Recovered/Resolved]
  - Colorectal cancer metastatic [None]
  - Ascites [None]
  - Metastases to lung [None]
  - Faeces discoloured [None]
  - Metastases to lymph nodes [None]
  - Haemoglobin decreased [None]
  - Tumour haemorrhage [None]

NARRATIVE: CASE EVENT DATE: 201710
